FAERS Safety Report 6600706-X (Version None)
Quarter: 2010Q1

REPORT INFORMATION
  Report Type: 
  Country: None (occurrence: None)
  Receive Date: 20100223
  Receipt Date: 20100223
  Transmission Date: 20100710
  Serious: No
  Sender: FDA-Public Use
  Company Number: None

PATIENT
  Age: 62 Year
  Sex: Female
  Weight: 86.1834 kg

DRUGS (2)
  1. SEROQUEL XR [Suspect]
     Indication: INSOMNIA
     Dosage: 50 MG TAB 1 AT BEDTIME ORAL
     Route: 048
     Dates: start: 20091217, end: 20091225
  2. SEROQUEL [Suspect]
     Indication: INSOMNIA
     Dosage: 50 MG TAB 1 AT BEDTIME ORAL
     Route: 048
     Dates: start: 20100104, end: 20100106

REACTIONS (3)
  - DIZZINESS [None]
  - FEELING ABNORMAL [None]
  - SOMNOLENCE [None]
